FAERS Safety Report 13335155 (Version 1)
Quarter: 2017Q1

REPORT INFORMATION
  Report Type: Other
  Country: GB (occurrence: IN)
  Receive Date: 20170314
  Receipt Date: 20170314
  Transmission Date: 20170428
  Serious: Yes (Life-Threatening, Hospitalization, Other)
  Sender: FDA-Public Use
  Company Number: IN-INTERNATIONAL MEDICATION SYSTEMS, LIMITED-1064237

PATIENT
  Sex: Male
  Weight: 60 kg

DRUGS (4)
  1. LIGNOCAINE 2% [Suspect]
     Active Substance: LIDOCAINE HYDROCHLORIDE
  2. EPINEPHRINE. [Concomitant]
     Active Substance: EPINEPHRINE
  3. AMOXICILLIN, CLAVULANIC ACID [Concomitant]
     Active Substance: AMOXICILLIN\CLAVULANIC ACID
  4. DICLOFENAC [Concomitant]
     Active Substance: DICLOFENAC

REACTIONS (3)
  - Depressed level of consciousness [Recovered/Resolved]
  - Adrenal disorder [Recovered/Resolved]
  - Neurotoxicity [Recovered/Resolved]
